FAERS Safety Report 15898819 (Version 1)
Quarter: 2019Q1

REPORT INFORMATION
  Report Type: Spontaneous
  Country: FR (occurrence: FR)
  Receive Date: 20190201
  Receipt Date: 20190201
  Transmission Date: 20190417
  Serious: Yes (Other)
  Sender: FDA-Public Use
  Company Number: FR-AUROBINDO-AUR-APL-2019-003957

PATIENT
  Age: 69 Year
  Sex: Female
  Weight: 48 kg

DRUGS (2)
  1. CEFTAZIDIME. [Suspect]
     Active Substance: CEFTAZIDIME
     Indication: OTITIS EXTERNA
     Dosage: 2 GRAM, DAILY
     Route: 042
     Dates: start: 20180919, end: 20181009
  2. PARACETAMOL [Suspect]
     Active Substance: ACETAMINOPHEN
     Indication: OTITIS EXTERNA
     Dosage: 2 GRAM, DAILY
     Route: 048
     Dates: start: 20180919, end: 20181009

REACTIONS (1)
  - Hepatitis [Recovering/Resolving]

NARRATIVE: CASE EVENT DATE: 20181009
